FAERS Safety Report 7919152-1 (Version None)
Quarter: 2011Q4

REPORT INFORMATION
  Report Type: 
  Country: None (occurrence: None)
  Receive Date: 20111117
  Receipt Date: 20091214
  Transmission Date: 20120403
  Serious: Yes (Death, Hospitalization)
  Sender: FDA-Public Use
  Company Number: TH-ROCHE-645064

PATIENT
  Sex: Female
  Weight: 20.2 kg

DRUGS (10)
  1. LAMIVUDINE [Suspect]
     Indication: HIV INFECTION
     Dosage: DOSAGE FORM REPORTED AS CAPSULE/LIQUID.
     Route: 048
     Dates: start: 20050330, end: 20051102
  2. ISONIAZID [Concomitant]
  3. RIFAMPICIN [Concomitant]
  4. STREPTOMYCIN [Concomitant]
  5. INVIRASE [Suspect]
     Indication: HIV INFECTION
     Route: 048
     Dates: start: 20050330, end: 20051102
  6. PYRAZINAMIDE [Concomitant]
  7. FLUCONAZOLE [Concomitant]
     Dosage: TOTAL DAILY DOSE REPORTED AS 100 M,W,F.
  8. LOPINAVIR AND RITONAVIR [Suspect]
     Indication: HIV INFECTION
     Dosage: STRENGTH: 133/33 MG ADULT CAPSULES
     Route: 048
     Dates: start: 20050330, end: 20051102
  9. COTRIM [Concomitant]
  10. ACYCLOVIR [Concomitant]

REACTIONS (5)
  - PULMONARY TUBERCULOSIS [None]
  - DIARRHOEA INFECTIOUS [None]
  - HAEMOPTYSIS [None]
  - BACTERIAL SEPSIS [None]
  - GASTROENTERITIS [None]
